FAERS Safety Report 4269118-0 (Version None)
Quarter: 2004Q1

REPORT INFORMATION
  Report Type: 
  Country: None (occurrence: None)
  Receive Date: 20040109
  Receipt Date: 20031229
  Transmission Date: 20041129
  Serious: No
  Sender: FDA-Public Use
  Company Number: THYR-10128

PATIENT
  Age: 72 Year
  Sex: Female
  Weight: 73 kg

DRUGS (4)
  1. THYROGEN [Suspect]
     Dosage: 0.01 MG IM
     Route: 030
     Dates: start: 20000222, end: 20000222
  2. IODINE-131 [Suspect]
     Indication: GOITRE
     Dates: start: 20000222, end: 20000222
  3. ACETOSAL [Concomitant]
  4. OXAZEPAM [Concomitant]

REACTIONS (5)
  - ATRIAL FIBRILLATION [None]
  - AUTOIMMUNE DISORDER [None]
  - CARDIAC FAILURE [None]
  - HYPERTHYROIDISM [None]
  - POST PROCEDURAL COMPLICATION [None]
